FAERS Safety Report 23904737 (Version 2)
Quarter: 2024Q3

REPORT INFORMATION
  Report Type: Spontaneous
  Country: KR (occurrence: KR)
  Receive Date: 20240527
  Receipt Date: 20240702
  Transmission Date: 20241016
  Serious: Yes (Hospitalization, Other)
  Sender: BRISTOL MYERS SQUIBB
  Company Number: KR-BRISTOL-MYERS SQUIBB COMPANY-2024-083106

PATIENT
  Age: 67 Year
  Sex: Male
  Weight: 57.2 kg

DRUGS (5)
  1. ELIQUIS [Suspect]
     Active Substance: APIXABAN
     Indication: Pulmonary arterial hypertension
     Dates: start: 20190925, end: 202012
  2. CARVEDILOL [Concomitant]
     Active Substance: CARVEDILOL
     Indication: Pulmonary arterial hypertension
     Dates: start: 20190910, end: 202006
  3. FUROSEMIDE [Concomitant]
     Active Substance: FUROSEMIDE
     Indication: Pulmonary arterial hypertension
     Dates: start: 20190910
  4. DIGOXIN [Concomitant]
     Active Substance: DIGOXIN
     Indication: Pulmonary arterial hypertension
     Dates: start: 20190910
  5. GLICLAZIDE [Concomitant]
     Active Substance: GLICLAZIDE
     Indication: Pulmonary arterial hypertension
     Dates: start: 2019

REACTIONS (2)
  - Pulmonary hypertension [Recovered/Resolved]
  - Off label use [Unknown]

NARRATIVE: CASE EVENT DATE: 20200619
